FAERS Safety Report 7606094-4 (Version None)
Quarter: 2011Q3

REPORT INFORMATION
  Report Type: 
  Country: None (occurrence: None)
  Receive Date: 20110713
  Receipt Date: 20110704
  Transmission Date: 20111222
  Serious: Yes (Hospitalization, Congenital Anomaly, Other)
  Sender: FDA-Public Use
  Company Number: DE-TEVA-288936GER

PATIENT
  Age: 0 Year
  Sex: Male
  Weight: 2.135 kg

DRUGS (3)
  1. FOLIO FORTE [Concomitant]
     Dosage: .8 MILLIGRAM;
     Route: 064
  2. BETAMETHASON [Concomitant]
     Route: 064
     Dates: start: 20091119, end: 20091119
  3. CLOMIPRAMINE HYDROCHLORIDE [Suspect]
     Dosage: 150 MILLIGRAM;
     Route: 064
     Dates: start: 20090408, end: 20091120

REACTIONS (5)
  - PREMATURE BABY [None]
  - OPISTHOTONUS [None]
  - MYOCLONUS [None]
  - NEONATAL RESPIRATORY DISTRESS SYNDROME [None]
  - XANTHOGRANULOMA [None]
